FAERS Safety Report 9689220 (Version 2)
Quarter: 2014Q1

REPORT INFORMATION
  Report Type: Report from Study
  Country: BR (occurrence: BR)
  Receive Date: 20131114
  Receipt Date: 20140212
  Transmission Date: 20141002
  Serious: Yes (Hospitalization, Other)
  Sender: FDA-Public Use
  Company Number: PHHY2013BR129961

PATIENT
  Sex: Female
  Weight: 70 kg

DRUGS (8)
  1. ZELMAC [Suspect]
     Indication: ABDOMINAL DISTENSION
     Dosage: 1 DF, BID (1 BEFORE LUNCH AND 1 AT NIGHT)
     Route: 048
  2. ZELMAC [Suspect]
     Dosage: UNK UKN, UNK
     Route: 048
  3. TOPIRAMATE [Concomitant]
     Indication: ANTIDEPRESSANT THERAPY
     Dosage: 6 DF, QD (1DF=100 MG)
     Route: 048
  4. TOPIRAMATE [Concomitant]
     Dosage: 50 MG, UNK
     Route: 048
     Dates: start: 20140204
  5. ZOLOFT [Concomitant]
     Indication: ANTIDEPRESSANT THERAPY
     Dosage: 3 DF, QD
     Route: 048
  6. SERTRALINE [Concomitant]
     Indication: ANTIDEPRESSANT THERAPY
     Dosage: 1 DF (100 MG), IN THE MORNING
     Route: 048
  7. SERTRALINE [Concomitant]
     Dosage: 50 MG, UNK
     Route: 048
     Dates: start: 20140204
  8. RIVOTRIL [Concomitant]
     Indication: ANTIDEPRESSANT THERAPY
     Dosage: 1 DF, AT NIGHT
     Route: 048

REACTIONS (9)
  - Lymphoma [Recovered/Resolved]
  - Gastrointestinal infection [Not Recovered/Not Resolved]
  - Gastrointestinal disorder [Not Recovered/Not Resolved]
  - Abdominal pain [Not Recovered/Not Resolved]
  - Abdominal distension [Not Recovered/Not Resolved]
  - Appendicitis [Not Recovered/Not Resolved]
  - Gout [Recovered/Resolved]
  - Rheumatic disorder [Not Recovered/Not Resolved]
  - Emotional distress [Not Recovered/Not Resolved]
